FAERS Safety Report 6591141-1 (Version None)
Quarter: 2010Q1

REPORT INFORMATION
  Report Type: 
  Country: None (occurrence: None)
  Receive Date: 20100219
  Receipt Date: 20090604
  Transmission Date: 20100710
  Serious: No
  Sender: FDA-Public Use
  Company Number: US-BRISTOL-MYERS SQUIBB COMPANY-14650071

PATIENT
  Age: 34 Year
  Sex: Female
  Weight: 70 kg

DRUGS (1)
  1. KENALOG [Suspect]
     Indication: INTERVERTEBRAL DISC PROTRUSION
     Dates: start: 20090301

REACTIONS (4)
  - ANAEMIA [None]
  - INJECTION SITE ATROPHY [None]
  - NAUSEA [None]
  - VAGINAL HAEMORRHAGE [None]
